FAERS Safety Report 6233057-6 (Version None)
Quarter: 2009Q2

REPORT INFORMATION
  Report Type: 
  Country: None (occurrence: None)
  Receive Date: 20090617
  Receipt Date: 20090605
  Transmission Date: 20091009
  Serious: Yes (Hospitalization)
  Sender: FDA-Public Use
  Company Number: US-TYCO HEALTHCARE/MALLINCKRODT-T200901148

PATIENT
  Sex: Female

DRUGS (9)
  1. OXYCODONE HCL AND ACETAMINOPHEN [Suspect]
     Indication: PAIN
     Dosage: 1 TAB, 1 OR 2 TIMES DAILY PRN
  2. OXYCODONE HCL AND ACETAMINOPHEN [Suspect]
     Dosage: 1 TAB, 1 OR 2 TIMES DAILY, PRN
     Route: 048
     Dates: start: 20090520
  3. ENDOCET [Concomitant]
     Indication: PAIN
     Dosage: 1 Q6H, PRN
     Route: 048
     Dates: start: 20090515, end: 20090519
  4. DIOVAN                             /01319601/ [Concomitant]
     Indication: BLOOD PRESSURE
     Dosage: 160 MG, UNK
  5. ACTOS [Concomitant]
     Indication: DIABETES MELLITUS
     Dosage: 30 MG, UNK
  6. LANTUS [Concomitant]
     Indication: DIABETES MELLITUS
     Dosage: 50 UNK, UNK
  7. PROZAC                             /00724401/ [Concomitant]
     Indication: DEPRESSION
     Dosage: 40 MG, UNK
  8. ALPRAZOLAM [Concomitant]
  9. ASPIRIN [Concomitant]

REACTIONS (1)
  - MYOCARDIAL INFARCTION [None]
